FAERS Safety Report 22218643 (Version 1)
Quarter: 2023Q2

REPORT INFORMATION
  Report Type: Spontaneous
  Country: US (occurrence: None)
  Receive Date: 20230415
  Receipt Date: 20230415
  Transmission Date: 20230721
  Serious: Yes (Other)
  Sender: FDA-Public Use
  Company Number: None

PATIENT
  Age: 34 Year
  Sex: Female
  Weight: 94.5 kg

DRUGS (1)
  1. BUDESONIDE AND FORMOTEROL FUMARATE DIHYDRATE [Suspect]
     Active Substance: BUDESONIDE\FORMOTEROL FUMARATE
     Indication: Asthma
     Dosage: FREQUENCY : TWICE A DAY;?
     Route: 055
     Dates: start: 20230314, end: 20230414

REACTIONS (25)
  - Pruritus [None]
  - Palpitations [None]
  - Disturbance in attention [None]
  - Cognitive disorder [None]
  - Headache [None]
  - Insomnia [None]
  - Chest discomfort [None]
  - Hypopnoea [None]
  - Insomnia [None]
  - Nausea [None]
  - Dizziness [None]
  - Mood swings [None]
  - Depression [None]
  - Muscle disorder [None]
  - Paraesthesia [None]
  - Asthenia [None]
  - Generalised oedema [None]
  - Hyperhidrosis [None]
  - Pollakiuria [None]
  - Vision blurred [None]
  - Seizure [None]
  - Feeling cold [None]
  - Hypoaesthesia [None]
  - Fall [None]
  - Dysstasia [None]

NARRATIVE: CASE EVENT DATE: 20230412
